FAERS Safety Report 9862459 (Version 2)
Quarter: 2014Q2

REPORT INFORMATION
  Report Type: Spontaneous
  Country: US (occurrence: US)
  Receive Date: 20140203
  Receipt Date: 20140407
  Transmission Date: 20141212
  Serious: No
  Sender: FDA-Public Use
  Company Number: US-TEVA-459871USA

PATIENT
  Age: 33 Year
  Sex: Female

DRUGS (2)
  1. PARAGARD 380A [Suspect]
     Indication: CONTRACEPTION
     Route: 015
     Dates: start: 20110819, end: 20131210
  2. PARAGARD 380A [Suspect]
     Route: 015
     Dates: start: 20140221

REACTIONS (1)
  - Device expulsion [Recovered/Resolved]
